APPROVED DRUG PRODUCT: ETODOLAC
Active Ingredient: ETODOLAC
Strength: 200MG
Dosage Form/Route: CAPSULE;ORAL
Application: A075126 | Product #001 | TE Code: AB
Applicant: ANI PHARMACEUTICALS INC
Approved: Sep 16, 1999 | RLD: No | RS: No | Type: RX